FAERS Safety Report 12862178 (Version 1)
Quarter: 2016Q4

REPORT INFORMATION
  Report Type: Spontaneous
  Country: US (occurrence: US)
  Receive Date: 20161018
  Receipt Date: 20161018
  Transmission Date: 20170207
  Serious: Yes (Other)
  Sender: FDA-Public Use
  Company Number: None

PATIENT
  Age: 49 Year
  Sex: Female
  Weight: 87.75 kg

DRUGS (5)
  1. VITAMIN D [Concomitant]
     Active Substance: CHOLECALCIFEROL
  2. METOPROLOL. [Concomitant]
     Active Substance: METOPROLOL
  3. HYDROCHLOROTHIAZIDE. [Concomitant]
     Active Substance: HYDROCHLOROTHIAZIDE
  4. METFORMIN [Suspect]
     Active Substance: METFORMIN HYDROCHLORIDE
     Indication: DIABETES MELLITUS
  5. VITAMIN B [Concomitant]
     Active Substance: VITAMIN B

REACTIONS (7)
  - Activities of daily living impaired [None]
  - Product substitution issue [None]
  - Asthenia [None]
  - Vision blurred [None]
  - Dizziness [None]
  - Malaise [None]
  - Somnolence [None]

NARRATIVE: CASE EVENT DATE: 20160930
